FAERS Safety Report 9899720 (Version 2)
Quarter: 2014Q1

REPORT INFORMATION
  Report Type: Spontaneous
  Country: US (occurrence: US)
  Receive Date: 20140214
  Receipt Date: 20140214
  Transmission Date: 20141002
  Serious: Yes (Hospitalization)
  Sender: FDA-Public Use
  Company Number: US-GILEAD-2011-0041167

PATIENT
  Age: 53 Year
  Sex: Female
  Weight: 64.4 kg

DRUGS (16)
  1. LETAIRIS [Suspect]
     Indication: PULMONARY HYPERTENSION
     Route: 048
     Dates: start: 20090325
  2. LETAIRIS [Suspect]
     Indication: SYSTEMIC LUPUS ERYTHEMATOSUS
  3. SILDENAFIL [Concomitant]
     Indication: PULMONARY HYPERTENSION
     Dates: start: 2000
  4. VENTAVIS [Concomitant]
     Indication: PULMONARY HYPERTENSION
  5. ASPIRIN [Concomitant]
  6. CARDIZEM [Concomitant]
  7. LASIX [Concomitant]
  8. NORVASC [Concomitant]
  9. OXYGEN [Concomitant]
  10. SINGULAIR [Concomitant]
  11. ALBUTEROL [Concomitant]
  12. ADVAIR [Concomitant]
  13. ZOLOFT [Concomitant]
  14. XANAX [Concomitant]
  15. ZOMIG [Concomitant]
  16. ARANESP [Concomitant]
     Indication: ANAEMIA

REACTIONS (1)
  - Dyspnoea [Unknown]
